FAERS Safety Report 15549512 (Version 5)
Quarter: 2018Q4

REPORT INFORMATION
  Report Type: Spontaneous
  Country: US (occurrence: US)
  Receive Date: 20181025
  Receipt Date: 20181212
  Transmission Date: 20190205
  Serious: Yes (Other)
  Sender: FDA-Public Use
  Company Number: US-PFIZER INC-2018433182

PATIENT
  Sex: Female

DRUGS (2)
  1. LYRICA [Suspect]
     Active Substance: PREGABALIN
     Indication: POST HERPETIC NEURALGIA
     Dosage: UNK
  2. LYRICA [Suspect]
     Active Substance: PREGABALIN
     Dosage: UNK [SHE TOOK A LITTLE AND THAT DID NOT WORK SO SHE TOOK HALF, THEN ONE]

REACTIONS (8)
  - Coma [Unknown]
  - Decreased appetite [Unknown]
  - Intentional product misuse [Unknown]
  - Balance disorder [Unknown]
  - Pain [Unknown]
  - Drug ineffective [Unknown]
  - Headache [Unknown]
  - Product tampering [Unknown]
